FAERS Safety Report 6087510-9 (Version None)
Quarter: 2009Q1

REPORT INFORMATION
  Report Type: 
  Country: None (occurrence: None)
  Receive Date: 20090223
  Receipt Date: 20090210
  Transmission Date: 20090719
  Serious: Yes (Other)
  Sender: FDA-Public Use
  Company Number: BE-ELI_LILLY_AND_COMPANY-BE200902002328

PATIENT
  Age: 41 Year
  Sex: Male

DRUGS (1)
  1. CYMBALTA [Suspect]
     Indication: DEPRESSION
     Dosage: 60 MG, DAILY (1/D)
     Route: 048
     Dates: start: 20081001, end: 20081201

REACTIONS (5)
  - CHEST PAIN [None]
  - DYSAESTHESIA [None]
  - HYPERTENSIVE CRISIS [None]
  - MALAISE [None]
  - SYNCOPE [None]
